FAERS Safety Report 11764641 (Version 1)
Quarter: 2015Q4

REPORT INFORMATION
  Report Type: Spontaneous
  Country: US (occurrence: US)
  Receive Date: 20151120
  Receipt Date: 20151120
  Transmission Date: 20160304
  Serious: Yes (Other)
  Sender: FDA-Public Use
  Company Number: US-ELI_LILLY_AND_COMPANY-US201306003938

PATIENT
  Age: 83 Year
  Sex: Female

DRUGS (1)
  1. FORTEO [Suspect]
     Active Substance: TERIPARATIDE
     Dosage: UNK UNK, QD
     Dates: start: 201301

REACTIONS (4)
  - Arthralgia [Unknown]
  - Back pain [Unknown]
  - Blood pressure increased [Unknown]
  - Myalgia [Unknown]

NARRATIVE: CASE EVENT DATE: 201301
